FAERS Safety Report 15407630 (Version 2)
Quarter: 2018Q4

REPORT INFORMATION
  Report Type: Spontaneous
  Country: US (occurrence: US)
  Receive Date: 20180920
  Receipt Date: 20181105
  Transmission Date: 20190204
  Serious: Yes (Hospitalization)
  Sender: FDA-Public Use
  Company Number: US-PFIZER INC-2018379248

PATIENT
  Age: 76 Year
  Sex: Female
  Weight: 78.5 kg

DRUGS (11)
  1. VITAMIN D [COLECALCIFEROL] [Concomitant]
     Dosage: UNK
  2. LABETALOL [Concomitant]
     Active Substance: LABETALOL\LABETALOL HYDROCHLORIDE
     Dosage: UNK
  3. LEVOTHYROXINE. [Concomitant]
     Active Substance: LEVOTHYROXINE
     Dosage: UNK
  4. SENNA [SENNA ALEXANDRINA] [Concomitant]
     Indication: FAECES HARD
     Dosage: UNK
  5. GLIMEPIRIDE. [Concomitant]
     Active Substance: GLIMEPIRIDE
     Dosage: UNK
  6. METOLAZONE. [Concomitant]
     Active Substance: METOLAZONE
     Dosage: UNK
  7. SUTENT [Suspect]
     Active Substance: SUNITINIB MALATE
     Indication: GASTROINTESTINAL STROMAL TUMOUR
     Dosage: 37.5 MG, DAILY
     Dates: start: 20180705, end: 20180913
  8. CARDURA [Concomitant]
     Active Substance: DOXAZOSIN MESYLATE
     Dosage: UNK
  9. EPOGEN [Concomitant]
     Active Substance: ERYTHROPOIETIN
     Dosage: UNK
  10. LISINOPRIL. [Concomitant]
     Active Substance: LISINOPRIL
     Dosage: UNK
  11. LASIX [Concomitant]
     Active Substance: FUROSEMIDE
     Dosage: UNK

REACTIONS (3)
  - Hypertension [Unknown]
  - Weight increased [Unknown]
  - Fluid retention [Unknown]
